FAERS Safety Report 22536127 (Version 1)
Quarter: 2023Q2

REPORT INFORMATION
  Report Type: Spontaneous
  Country: None (occurrence: GB)
  Receive Date: 20230608
  Receipt Date: 20230608
  Transmission Date: 20230721
  Serious: Yes (Death)
  Sender: FDA-Public Use
  Company Number: GB-Therakind Limited-2142469

PATIENT
  Age: 67 Year
  Sex: Female

DRUGS (3)
  1. METHOTREXATE [Suspect]
     Active Substance: METHOTREXATE
  2. BARICITINIB [Suspect]
     Active Substance: BARICITINIB
     Dates: start: 20190816, end: 2020
  3. METHOTREXATE [Suspect]
     Active Substance: METHOTREXATE
     Dates: start: 2019

REACTIONS (1)
  - Lung cancer metastatic [Fatal]

NARRATIVE: CASE EVENT DATE: 20200101
